FAERS Safety Report 4591594-4 (Version None)
Quarter: 2005Q1

REPORT INFORMATION
  Report Type: 
  Country: None (occurrence: None)
  Receive Date: 20050223
  Receipt Date: 20050207
  Transmission Date: 20050727
  Serious: Yes (Hospitalization)
  Sender: FDA-Public Use
  Company Number: TRP_0057_2005

PATIENT
  Age: 53 Year
  Sex: Male

DRUGS (7)
  1. RIBASPHERE [Suspect]
     Indication: HEPATITIS C
     Dosage: 1200 MG QDAY PO
     Route: 048
     Dates: start: 20040914, end: 20041201
  2. PEG-INTRON [Suspect]
     Indication: HEPATITIS C
     Dosage: 150 MCG QWK SC
     Route: 058
     Dates: start: 20040914, end: 20041201
  3. CALCIUM CARBONATE [Concomitant]
  4. CLONAZEPAM [Concomitant]
  5. LEXAPRO [Concomitant]
  6. PREDNISONE [Concomitant]
  7. VITAMIN E [Concomitant]

REACTIONS (2)
  - CIRCULATORY COLLAPSE [None]
  - WHITE BLOOD CELL COUNT DECREASED [None]
